FAERS Safety Report 19739033 (Version 1)
Quarter: 2021Q3

REPORT INFORMATION
  Report Type: Spontaneous
  Country: NL (occurrence: NL)
  Receive Date: 20210824
  Receipt Date: 20210824
  Transmission Date: 20211014
  Serious: Yes (Hospitalization)
  Sender: FDA-Public Use
  Company Number: NL-009507513-2108NLD005362

PATIENT
  Sex: Male
  Weight: 73 kg

DRUGS (2)
  1. PEMETREXED. [Concomitant]
     Active Substance: PEMETREXED
     Dosage: UNK
  2. PEMBROLIZUMAB. [Suspect]
     Active Substance: PEMBROLIZUMAB
     Indication: PRODUCT USED FOR UNKNOWN INDICATION
     Dosage: CURES
     Dates: start: 20210712

REACTIONS (1)
  - Impaired gastric emptying [Recovering/Resolving]
